FAERS Safety Report 24300006 (Version 1)
Quarter: 2024Q3

REPORT INFORMATION
  Report Type: Spontaneous
  Country: US (occurrence: None)
  Receive Date: 20240908
  Receipt Date: 20240908
  Transmission Date: 20241017
  Serious: No
  Sender: Public
  Company Number: None

PATIENT
  Age: 65 Year
  Sex: Female

DRUGS (1)
  1. CEFTRIAXONE [Suspect]
     Active Substance: CEFTRIAXONE\CEFTRIAXONE SODIUM
     Indication: Otitis media
     Dosage: 2 G (GRAM(S) DAILY INTRAVENOUS
     Route: 042

REACTIONS (1)
  - Rash [None]

NARRATIVE: CASE EVENT DATE: 20240907
